FAERS Safety Report 7643005-X (Version None)
Quarter: 2011Q3

REPORT INFORMATION
  Report Type: 
  Country: None (occurrence: None)
  Receive Date: 20110728
  Receipt Date: 20110722
  Transmission Date: 20111222
  Serious: Yes (Life-Threatening, Hospitalization, Disabling)
  Sender: FDA-Public Use
  Company Number: US-MERCK-1107USA02955

PATIENT
  Age: 66 Year
  Sex: Male

DRUGS (1)
  1. CANCIDAS [Suspect]
     Indication: PNEUMONIA
     Route: 041

REACTIONS (1)
  - RENAL FAILURE ACUTE [None]
